FAERS Safety Report 9301517 (Version 2)
Quarter: 2013Q2

REPORT INFORMATION
  Report Type: Spontaneous
  Country: GB (occurrence: GB)
  Receive Date: 20130521
  Receipt Date: 20130528
  Transmission Date: 20140414
  Serious: Yes (Disabling, Other)
  Sender: FDA-Public Use
  Company Number: PHFR2012GB006394

PATIENT
  Age: 46 Year
  Sex: Male

DRUGS (7)
  1. CLOZARIL [Suspect]
     Indication: SCHIZOPHRENIA
     Dosage: 200 MG, UNK
     Route: 048
     Dates: start: 20120912
  2. LITHIUM CARBONATE [Concomitant]
     Dosage: 600 MG, UNK
     Route: 048
  3. LANSOPRAZOLE [Concomitant]
     Dosage: 30 MG, UNK
     Route: 048
  4. THIAMINE [Concomitant]
     Dosage: 100 MG, UNK
     Route: 048
  5. VITAMIN A [Concomitant]
     Dosage: UNK MG, BID
     Route: 048
  6. FERROUS SULPHATE [Concomitant]
     Dosage: 200 MG, BID
     Route: 048
  7. LEVOTHYROXINE [Concomitant]
     Dosage: 50 MG, BID
     Route: 048

REACTIONS (4)
  - Hepatic failure [Not Recovered/Not Resolved]
  - Platelet count decreased [Not Recovered/Not Resolved]
  - White blood cell count decreased [Not Recovered/Not Resolved]
  - Neutrophil count decreased [Not Recovered/Not Resolved]
